FAERS Safety Report 4961991-3 (Version None)
Quarter: 2006Q2

REPORT INFORMATION
  Report Type: 
  Country: None (occurrence: None)
  Receive Date: 20060404
  Receipt Date: 20060207
  Transmission Date: 20061013
  Serious: Yes (Hospitalization)
  Sender: FDA-Public Use
  Company Number: US-MERCK-0602USA01793

PATIENT
  Age: 93 Year
  Sex: Female
  Weight: 54 kg

DRUGS (3)
  1. VIOXX [Suspect]
     Indication: ARTHRITIS
     Route: 048
     Dates: start: 20000710, end: 20010929
  2. VIOXX [Suspect]
     Indication: ARTHRALGIA
     Route: 048
     Dates: start: 20000710, end: 20010929
  3. VASOTEC [Suspect]
     Route: 065

REACTIONS (30)
  - ANAEMIA [None]
  - BLADDER NEOPLASM [None]
  - BRONCHITIS [None]
  - CARDIAC FAILURE CONGESTIVE [None]
  - CARDIOMEGALY [None]
  - COUGH [None]
  - DECUBITUS ULCER [None]
  - DEMENTIA [None]
  - DEPRESSED LEVEL OF CONSCIOUSNESS [None]
  - EATING DISORDER [None]
  - FALL [None]
  - FIBRIN D DIMER INCREASED [None]
  - HAEMATURIA [None]
  - HAEMORRHAGE [None]
  - HYPERCALCAEMIA [None]
  - HYPERTENSION [None]
  - HYPOGLYCAEMIA [None]
  - HYPOTENSION [None]
  - MENTAL STATUS CHANGES [None]
  - NUTRITIONAL SUPPORT [None]
  - ORAL INTAKE REDUCED [None]
  - PELVIC FRACTURE [None]
  - PNEUMONIA [None]
  - PNEUMONIA ASPIRATION [None]
  - PYREXIA [None]
  - SINUS TACHYCARDIA [None]
  - SKIN ULCER [None]
  - SWELLING [None]
  - URINARY TRACT INFECTION [None]
  - WRONG DRUG ADMINISTERED [None]
